FAERS Safety Report 24385012 (Version 2)
Quarter: 2025Q1

REPORT INFORMATION
  Report Type: Report from Study
  Country: KR (occurrence: KR)
  Receive Date: 20241001
  Receipt Date: 20250205
  Transmission Date: 20250408
  Serious: Yes (Hospitalization)
  Sender: PFIZER
  Company Number: KR-PFIZER INC-PV202400021555

PATIENT
  Age: 41 Year
  Sex: Male
  Weight: 61 kg

DRUGS (31)
  1. BESPONSA [Suspect]
     Active Substance: INOTUZUMAB OZOGAMICIN
     Indication: Acute lymphocytic leukaemia
     Dosage: 1.35 MG, 1X/DAY (QD)
     Route: 042
     Dates: start: 20231220, end: 20231220
  2. BESPONSA [Suspect]
     Active Substance: INOTUZUMAB OZOGAMICIN
     Dosage: 0.85 MG, 1X/DAY (QD)
     Route: 042
     Dates: start: 20231227, end: 20231227
  3. BESPONSA [Suspect]
     Active Substance: INOTUZUMAB OZOGAMICIN
     Dosage: 0.85 MG, 1X/DAY (QD)
     Route: 042
     Dates: start: 20240103, end: 20240103
  4. BESPONSA [Suspect]
     Active Substance: INOTUZUMAB OZOGAMICIN
     Dosage: 1.35 MG, 1X/DAY (QD)
     Route: 042
     Dates: start: 20240110, end: 20240110
  5. BESPONSA [Suspect]
     Active Substance: INOTUZUMAB OZOGAMICIN
     Dosage: 0.85 MG, 1X/DAY (QD)
     Route: 042
     Dates: start: 20240118, end: 20240118
  6. BESPONSA [Suspect]
     Active Substance: INOTUZUMAB OZOGAMICIN
     Dosage: 0.85 MG, 1X/DAY (QD)
     Route: 042
     Dates: start: 20240125, end: 20240125
  7. TYLENOL 8HR [Concomitant]
     Active Substance: ACETAMINOPHEN
     Indication: Prophylaxis
     Route: 048
     Dates: start: 20231220, end: 20231220
  8. TYLENOL 8HR [Concomitant]
     Active Substance: ACETAMINOPHEN
     Route: 048
     Dates: start: 20231227, end: 20231227
  9. TYLENOL 8HR [Concomitant]
     Active Substance: ACETAMINOPHEN
     Route: 048
     Dates: start: 20240103, end: 20240103
  10. TYLENOL 8HR [Concomitant]
     Active Substance: ACETAMINOPHEN
     Route: 048
     Dates: start: 20240110, end: 20240110
  11. TYLENOL 8HR [Concomitant]
     Active Substance: ACETAMINOPHEN
     Route: 048
     Dates: start: 20240118, end: 20240118
  12. TYLENOL 8HR [Concomitant]
     Active Substance: ACETAMINOPHEN
     Route: 048
     Dates: start: 20240125, end: 20240125
  13. PENIRAMIN [Concomitant]
     Indication: Prophylaxis
     Route: 042
     Dates: start: 20231220, end: 20231226
  14. PENIRAMIN [Concomitant]
     Indication: Prophylaxis
     Route: 042
     Dates: start: 20231227, end: 20231227
  15. PENIRAMIN [Concomitant]
     Route: 042
     Dates: start: 20240103, end: 20240103
  16. PENIRAMIN [Concomitant]
     Route: 042
     Dates: start: 20240110, end: 20240110
  17. PENIRAMIN [Concomitant]
     Route: 042
     Dates: start: 20240118, end: 20240118
  18. PENIRAMIN [Concomitant]
     Route: 042
     Dates: start: 20240122, end: 20240122
  19. PENIRAMIN [Concomitant]
     Route: 042
     Dates: start: 20240125, end: 20240125
  20. PENIRAMIN [Concomitant]
     Route: 042
     Dates: start: 20240129, end: 20240129
  21. DEXAMETHASONE [Concomitant]
     Active Substance: DEXAMETHASONE
     Indication: Prophylaxis
     Route: 042
     Dates: start: 20231220, end: 20231220
  22. DEXAMETHASONE [Concomitant]
     Active Substance: DEXAMETHASONE
     Route: 042
     Dates: start: 20240110, end: 20240110
  23. DEXAMETHASONE [Concomitant]
     Active Substance: DEXAMETHASONE
     Route: 042
     Dates: start: 20240118, end: 20240118
  24. DEXAMETHASONE [Concomitant]
     Active Substance: DEXAMETHASONE
     Route: 042
     Dates: start: 20240125, end: 20240125
  25. EPEROSINE [Concomitant]
     Indication: Acute lymphocytic leukaemia
     Route: 048
     Dates: start: 20231220
  26. MOSAPRIDE CITRATE [Concomitant]
     Active Substance: MOSAPRIDE CITRATE
     Indication: Acute lymphocytic leukaemia
     Route: 048
     Dates: start: 20231220
  27. FLUCOZOLE [Concomitant]
     Indication: Acute lymphocytic leukaemia
     Route: 048
     Dates: start: 20231220
  28. VENITOL [Concomitant]
     Indication: Acute lymphocytic leukaemia
     Route: 048
     Dates: start: 20231220
  29. OMPS [Concomitant]
     Indication: Acute lymphocytic leukaemia
     Route: 048
     Dates: start: 20231220
  30. TRAMADOL HYDROCHLORIDE [Concomitant]
     Active Substance: TRAMADOL HYDROCHLORIDE
     Indication: Acute lymphocytic leukaemia
     Route: 042
     Dates: start: 20231220
  31. MAXIPIME [Concomitant]
     Active Substance: CEFEPIME HYDROCHLORIDE
     Indication: Acute lymphocytic leukaemia
     Route: 042
     Dates: start: 20231220

REACTIONS (2)
  - Pollakiuria [Not Recovered/Not Resolved]
  - Haematuria [Not Recovered/Not Resolved]

NARRATIVE: CASE EVENT DATE: 20240129
